FAERS Safety Report 11536638 (Version 1)
Quarter: 2015Q3

REPORT INFORMATION
  Report Type: Spontaneous
  Country: US (occurrence: None)
  Receive Date: 20150921
  Receipt Date: 20150921
  Transmission Date: 20151125
  Serious: Yes (Other)
  Sender: FDA-Public Use
  Company Number: None

PATIENT
  Age: 33 Year
  Sex: Male

DRUGS (1)
  1. TRAZODONE [Suspect]
     Active Substance: TRAZODONE HYDROCHLORIDE
     Indication: INSOMNIA
     Dosage: QHS/BEDTIME
     Route: 048
     Dates: start: 20150414, end: 20150724

REACTIONS (7)
  - Fall [None]
  - Syncope [None]
  - Pallor [None]
  - Dizziness [None]
  - Bradycardia [None]
  - Somnolence [None]
  - Hypotension [None]

NARRATIVE: CASE EVENT DATE: 20150723
